FAERS Safety Report 5951857-4 (Version None)
Quarter: 2008Q4

REPORT INFORMATION
  Report Type: 
  Country: None (occurrence: None)
  Receive Date: 20081113
  Receipt Date: 20081104
  Transmission Date: 20090506
  Serious: Yes (Other)
  Sender: FDA-Public Use
  Company Number: US-AMGEN-QUU317286

PATIENT
  Sex: Male

DRUGS (1)
  1. ENBREL [Suspect]
     Indication: PSORIATIC ARTHROPATHY
     Route: 058
     Dates: start: 20000901

REACTIONS (13)
  - ARTHRALGIA [None]
  - DISEASE RECURRENCE [None]
  - HEADACHE [None]
  - HYPERTENSION [None]
  - INFLUENZA [None]
  - INSOMNIA [None]
  - NASOPHARYNGITIS [None]
  - PYREXIA [None]
  - REFLUX OESOPHAGITIS [None]
  - RHEUMATOID ARTHRITIS [None]
  - SPUTUM DISCOLOURED [None]
  - TUBERCULIN TEST POSITIVE [None]
  - VERTIGO [None]
